FAERS Safety Report 8677179 (Version 3)
Quarter: 2013Q1

REPORT INFORMATION
  Report Type: Report from Study
  Country: US (occurrence: US)
  Receive Date: 20120723
  Receipt Date: 20130219
  Transmission Date: 20140127
  Serious: Yes (Death, Other)
  Sender: FDA-Public Use
  Company Number: US-JNJFOC-20120709850

PATIENT
  Sex: 0

DRUGS (12)
  1. DOXORUBICIN HYDROCHLORIDE (DOXIL) [Suspect]
     Indication: LYMPHOMA AIDS RELATED
     Dosage: ON DAY 1
     Route: 042
  2. RITUXIMAB [Suspect]
     Indication: LYMPHOMA AIDS RELATED
     Route: 042
  3. CYCLOPHOSPHAMIDE [Suspect]
     Indication: LYMPHOMA AIDS RELATED
     Route: 042
  4. VINCRISTINE [Suspect]
     Indication: LYMPHOMA AIDS RELATED
     Dosage: NOT MORE THAN 2MG
     Route: 042
  5. PREDNISONE [Suspect]
     Indication: LYMPHOMA AIDS RELATED
     Dosage: ON DAYS 1-5
     Route: 048
  6. G-CSF [Concomitant]
     Indication: PALLIATIVE CARE
     Route: 065
  7. GM-CSF [Concomitant]
     Indication: PALLIATIVE CARE
     Route: 065
  8. PEGFILGRASTIM [Concomitant]
     Indication: PRODUCT USED FOR UNKNOWN INDICATION
     Route: 065
  9. UNKNOWN MEDICATION [Concomitant]
     Indication: ANTIFUNGAL PROPHYLAXIS
     Route: 065
  10. QUINOLONE [Concomitant]
     Indication: NEUTROPHIL COUNT
     Route: 048
  11. ANTIRETROVIRAL MEDICATIONS [Concomitant]
     Indication: ANTIRETROVIRAL THERAPY
     Route: 065
  12. UNKNOWN MEDICATION [Concomitant]
     Indication: PALLIATIVE CARE
     Route: 065

REACTIONS (12)
  - Lymphoma [Fatal]
  - Palmar-plantar erythrodysaesthesia syndrome [Unknown]
  - B-cell lymphoma [Unknown]
  - Nervous system disorder [Unknown]
  - Lymphoma AIDS related [Unknown]
  - Adverse event [Unknown]
  - Infection [Unknown]
  - Upper respiratory tract infection [Unknown]
  - Diffuse large B-cell lymphoma [Unknown]
  - Device related infection [Unknown]
  - Drug ineffective [Unknown]
  - Mucosal infection [Unknown]
